FAERS Safety Report 6929775-4 (Version None)
Quarter: 2010Q3

REPORT INFORMATION
  Report Type: 
  Country: None (occurrence: None)
  Receive Date: 20100813
  Receipt Date: 20100803
  Transmission Date: 20110219
  Serious: Yes (Disabling)
  Sender: FDA-Public Use
  Company Number: 660245

PATIENT
  Age: 60 Year
  Sex: Female

DRUGS (4)
  1. VINCRISTINE [Suspect]
     Indication: PERIPHERAL T-CELL LYMPHOMA UNSPECIFIED
  2. DOXORUBICIN HYDROCHLORIDE [Suspect]
     Indication: PERIPHERAL T-CELL LYMPHOMA UNSPECIFIED
  3. CYCLOPHOSPHAMIDE [Suspect]
     Indication: PERIPHERAL T-CELL LYMPHOMA UNSPECIFIED
  4. PREDNISOLONE [Suspect]
     Indication: PERIPHERAL T-CELL LYMPHOMA UNSPECIFIED

REACTIONS (6)
  - BLINDNESS [None]
  - CONFUSIONAL STATE [None]
  - NUCLEAR MAGNETIC RESONANCE IMAGING BRAIN ABNORMAL [None]
  - REVERSIBLE POSTERIOR LEUKOENCEPHALOPATHY SYNDROME [None]
  - VISION BLURRED [None]
  - VISUAL ACUITY REDUCED [None]
